FAERS Safety Report 6283506-2 (Version None)
Quarter: 2009Q3

REPORT INFORMATION
  Report Type: 
  Country: None (occurrence: None)
  Receive Date: 20090724
  Receipt Date: 20090421
  Transmission Date: 20100115
  Serious: Yes (Other)
  Sender: FDA-Public Use
  Company Number: US-ALEXION-A200900311

PATIENT
  Sex: Female

DRUGS (11)
  1. SOLIRIS [Suspect]
     Indication: PAROXYSMAL NOCTURNAL HAEMOGLOBINURIA
     Dosage: 600 MG, QWK
     Route: 042
     Dates: start: 20070918, end: 20071009
  2. SOLIRIS [Suspect]
     Dosage: 900 MG, Q2WK
     Route: 042
     Dates: start: 20071016, end: 20090101
  3. SOLIRIS [Suspect]
     Dosage: 700 MG, Q2WK
     Route: 042
     Dates: start: 20090101, end: 20090204
  4. SOLIRIS [Suspect]
     Dosage: 900 MG, Q2WK
     Route: 042
     Dates: start: 20090101
  5. MORPHINE [Concomitant]
     Dosage: 30 MG, PRN
     Route: 048
  6. FOLIC ACID [Concomitant]
     Dosage: 1 MG, QD
     Route: 048
  7. VALIUM [Concomitant]
     Dosage: 5 MG, PRN
     Route: 048
  8. AMBIEN [Concomitant]
     Dosage: 10 MG, PRN
     Route: 048
  9. LEXAPRO [Concomitant]
     Dosage: 20 MG, QD
     Route: 048
  10. CONTRACEPTIVES NOS [Concomitant]
     Dosage: UNK
     Route: 048
  11. NEUPOGEN [Concomitant]
     Dosage: 300 UG, 2-3/WK

REACTIONS (1)
  - PLATELET COUNT DECREASED [None]
